FAERS Safety Report 18733896 (Version 1)
Quarter: 2021Q1

REPORT INFORMATION
  Report Type: Spontaneous
  Country: US (occurrence: US)
  Receive Date: 20210111
  Receipt Date: 20210111
  Transmission Date: 20210419
  Serious: Yes (Death)
  Sender: FDA-Public Use
  Company Number: None

PATIENT
  Age: 75 Year
  Sex: Female

DRUGS (1)
  1. ZARXIO [Suspect]
     Active Substance: FILGRASTIM-SNDZ
     Dosage: ?          OTHER STRENGTH:300/0.5 UG/ML;?
     Route: 058
     Dates: start: 20201002, end: 20210104

REACTIONS (2)
  - Malignant neoplasm progression [None]
  - Neoplasm malignant [None]

NARRATIVE: CASE EVENT DATE: 20210104
